FAERS Safety Report 20129560 (Version 1)
Quarter: 2021Q4

REPORT INFORMATION
  Report Type: Spontaneous
  Country: CN (occurrence: CN)
  Receive Date: 20211130
  Receipt Date: 20211130
  Transmission Date: 20220303
  Serious: Yes (Other)
  Sender: FDA-Public Use
  Company Number: CN-BAXTER-2021BAX037447

PATIENT
  Age: 49 Year
  Sex: Female
  Weight: 41 kg

DRUGS (9)
  1. CYCLOPHOSPHAMIDE [Suspect]
     Active Substance: CYCLOPHOSPHAMIDE
     Indication: Breast cancer
     Dosage: AT 11:00
     Route: 041
     Dates: start: 20211026, end: 20211026
  2. CYCLOPHOSPHAMIDE [Suspect]
     Active Substance: CYCLOPHOSPHAMIDE
     Dosage: 1ST CHEMOTHERAPY
     Route: 041
  3. SODIUM CHLORIDE [Suspect]
     Active Substance: SODIUM CHLORIDE
     Indication: Medication dilution
     Dosage: THE PATIENT WAS GIVEN EPIRUBICIN HYDROCHLORIDE 130MG + NS 250ML, IVGTT, INTRAVENOUS DRIP FOR MORE TH
     Route: 041
     Dates: start: 20211026, end: 20211026
  4. SODIUM CHLORIDE [Suspect]
     Active Substance: SODIUM CHLORIDE
     Dosage: COMBINED WITH CYCLOPHOSPHAMIDE 850MG + NS 250ML, IVGTT, INTRAVENOUS DRIP FOR MORE THAN 1.5 H FOR CHE
     Route: 041
     Dates: start: 20211026, end: 20211026
  5. SODIUM CHLORIDE [Suspect]
     Active Substance: SODIUM CHLORIDE
     Dosage: THE PATIENT WAS GIVEN NS 250ML FOR FLUSHING TUBE
     Route: 065
     Dates: start: 20211026
  6. SODIUM CHLORIDE [Suspect]
     Active Substance: SODIUM CHLORIDE
     Dosage: 1ST CHEMOTHERAPY FOR CYCLOPHOSPHAMIDE
     Route: 041
  7. SODIUM CHLORIDE [Suspect]
     Active Substance: SODIUM CHLORIDE
     Dosage: 1ST CHEMOTHERAPY FOR EPIRUBICIN HYDROCHLORIDE
     Route: 041
  8. EPIRUBICIN HYDROCHLORIDE [Suspect]
     Active Substance: EPIRUBICIN HYDROCHLORIDE
     Indication: Breast cancer
     Dosage: AT 13: 40
     Route: 041
     Dates: start: 20211026, end: 20211026
  9. EPIRUBICIN HYDROCHLORIDE [Suspect]
     Active Substance: EPIRUBICIN HYDROCHLORIDE
     Dosage: 1ST CHEMOTHERAPY
     Route: 041

REACTIONS (2)
  - Myelosuppression [Recovering/Resolving]
  - Nausea [Recovered/Resolved]

NARRATIVE: CASE EVENT DATE: 20211026
